FAERS Safety Report 23447169 (Version 1)
Quarter: 2024Q1

REPORT INFORMATION
  Report Type: Spontaneous
  Country: US (occurrence: US)
  Receive Date: 20240126
  Receipt Date: 20240126
  Transmission Date: 20240409
  Serious: No
  Sender: FDA-Public Use
  Company Number: US-BEH-2024167769

PATIENT
  Sex: Female

DRUGS (2)
  1. HIZENTRA [Suspect]
     Active Substance: HUMAN IMMUNOGLOBULIN G
     Indication: Primary immunodeficiency syndrome
     Dosage: UNK
     Route: 065
  2. HIZENTRA [Suspect]
     Active Substance: HUMAN IMMUNOGLOBULIN G
     Dosage: 8 GRAM, QW
     Route: 065
     Dates: start: 202311

REACTIONS (8)
  - Scar [Unknown]
  - Skin striae [Unknown]
  - Haemorrhagic diathesis [Unknown]
  - Migraine [Unknown]
  - Immunoglobulins decreased [Unknown]
  - Therapy interrupted [Unknown]
  - COVID-19 [Unknown]
  - Appendicectomy [Unknown]

NARRATIVE: CASE EVENT DATE: 20230101
